FAERS Safety Report 17220005 (Version 9)
Quarter: 2022Q2

REPORT INFORMATION
  Report Type: Spontaneous
  Country: US (occurrence: US)
  Receive Date: 20191231
  Receipt Date: 20220513
  Transmission Date: 20220720
  Serious: No
  Sender: FDA-Public Use
  Company Number: US-SA-2019SA359651

PATIENT
  Age: 56 Year
  Sex: Female

DRUGS (1)
  1. DUPIXENT [Suspect]
     Active Substance: DUPILUMAB
     Indication: Dermatitis atopic
     Dosage: 300 MG, QOW
     Route: 058
     Dates: start: 201910

REACTIONS (8)
  - Skin wrinkling [Unknown]
  - Vision blurred [Unknown]
  - Alopecia [Unknown]
  - Plantar fasciitis [Unknown]
  - Pain in extremity [Unknown]
  - Dry skin [Unknown]
  - Skin disorder [Unknown]
  - Eczema [Not Recovered/Not Resolved]
